FAERS Safety Report 17759295 (Version 4)
Quarter: 2020Q4

REPORT INFORMATION
  Report Type: Spontaneous
  Country: MX (occurrence: MX)
  Receive Date: 20200508
  Receipt Date: 20201130
  Transmission Date: 20210113
  Serious: Yes (Other)
  Sender: FDA-Public Use
  Company Number: MX-ASTRAZENECA-2020SE60386

PATIENT
  Age: 23038 Day
  Sex: Female
  Weight: 56 kg

DRUGS (20)
  1. SPIRIVA [Concomitant]
     Active Substance: TIOTROPIUM BROMIDE MONOHYDRATE
     Indication: RESPIRATORY TRACT INFLAMMATION
     Dosage: 1 SHOT (18 MCG) PER DAY
     Dates: start: 1996
  2. DEFLAZACORT [Concomitant]
     Active Substance: DEFLAZACORT
     Dosage: 2 TABLETS EVERY 24 HRS. FOR 3 DAYS, AFTER 1 EVERY 24HRS. FOR 3 DAYS AND FOR THE LAST 1/2 EVERY 24...
     Route: 048
  3. ESOMEPRAZOLE. [Suspect]
     Active Substance: ESOMEPRAZOLE MAGNESIUM
     Indication: GASTRITIS
     Route: 048
     Dates: start: 2018
  4. PREDNISONE. [Concomitant]
     Active Substance: PREDNISONE
     Indication: RESPIRATORY TRACT INFLAMMATION
     Dosage: 1 SHOT (250 MG)
     Route: 048
     Dates: start: 1993, end: 2014
  5. COMBIVENT [Concomitant]
     Active Substance: ALBUTEROL SULFATE\IPRATROPIUM BROMIDE
  6. CELECOXIB. [Concomitant]
     Active Substance: CELECOXIB
  7. PROBIOTIC [Concomitant]
     Active Substance: PROBIOTICS NOS
     Indication: DYSBIOSIS
     Route: 065
     Dates: start: 2018
  8. SERETIDE [Concomitant]
     Active Substance: FLUTICASONE PROPIONATE\SALMETEROL XINAFOATE
     Indication: RESPIRATORY TRACT INFLAMMATION
     Dosage: 2 SHOTS (50/100 MG) EVERY 12 HOURS
     Route: 055
     Dates: start: 1993
  9. XOLAIR [Concomitant]
     Active Substance: OMALIZUMAB
     Indication: HYPERSENSITIVITY
     Dosage: 4 DOSAGE FORMS DOSE REDUCED TO 1 EVERY 15 DAYS, CONTINUES WITH THIS MEDICATION, MONTHLY
     Route: 030
     Dates: start: 2014
  10. SALBUTAMOL [Concomitant]
     Active Substance: ALBUTEROL
  11. SALMETEROL [Concomitant]
     Active Substance: SALMETEROL
     Dates: start: 1993
  12. ESOMEPRAZOLE. [Suspect]
     Active Substance: ESOMEPRAZOLE MAGNESIUM
     Indication: REFLUX GASTRITIS
     Route: 048
     Dates: start: 2018
  13. PREDNISONE. [Concomitant]
     Active Substance: PREDNISONE
     Dosage: 50.0MG UNKNOWN
     Dates: start: 1993
  14. XOLAIR [Concomitant]
     Active Substance: OMALIZUMAB
     Indication: HYPERSENSITIVITY
     Route: 030
     Dates: start: 2015
  15. XOLAIR [Concomitant]
     Active Substance: OMALIZUMAB
     Indication: HYPERSENSITIVITY
     Dosage: 150 MG, EVERY 15 WEEKS
     Route: 030
     Dates: start: 2015, end: 20171123
  16. BETAMETHASONE. [Concomitant]
     Active Substance: BETAMETHASONE
     Indication: BRONCHIAL DISORDER
     Dosage: (8 MG / 2 ML) UNKNOWN
     Route: 030
  17. BECLOMETASONE [Concomitant]
     Active Substance: BECLOMETHASONE DIPROPIONATE
     Indication: RESPIRATORY TRACT INFLAMMATION
     Route: 048
     Dates: start: 1993
  18. THEOPHYLLINE [Concomitant]
     Active Substance: THEOPHYLLINE ANHYDROUS
     Dates: start: 1993
  19. TEOFILINA [Concomitant]
     Indication: RESPIRATORY TRACT INFLAMMATION
     Dosage: 100 MG EVERY 12 HOURS
     Route: 048
     Dates: start: 1993, end: 2019
  20. PREGABALIN. [Concomitant]
     Active Substance: PREGABALIN

REACTIONS (11)
  - Obstructive airways disorder [Not Recovered/Not Resolved]
  - Asthma [Not Recovered/Not Resolved]
  - Gastrointestinal pain [Not Recovered/Not Resolved]
  - Abdominal discomfort [Unknown]
  - Pharyngitis [Unknown]
  - Dysbiosis [Unknown]
  - Multiple allergies [Unknown]
  - Dislocation of vertebra [Unknown]
  - Lower respiratory tract congestion [Not Recovered/Not Resolved]
  - Memory impairment [Unknown]
  - Feeling abnormal [Unknown]

NARRATIVE: CASE EVENT DATE: 20200316
